FAERS Safety Report 18300274 (Version 1)
Quarter: 2020Q3

REPORT INFORMATION
  Report Type: Spontaneous
  Country: US (occurrence: US)
  Receive Date: 20200922
  Receipt Date: 20200922
  Transmission Date: 20201103
  Serious: Yes (Hospitalization)
  Sender: FDA-Public Use
  Company Number: None

PATIENT
  Age: 26 Year
  Sex: Male

DRUGS (4)
  1. PULMOZYME [Suspect]
     Active Substance: DORNASE ALFA
     Indication: CYSTIC FIBROSIS
     Dosage: ?          OTHER DOSE:1/1 MG/ML;?
     Route: 055
     Dates: start: 20190726
  2. TOBRAMYCIN 300MG/5 ML [Suspect]
     Active Substance: TOBRAMYCIN
     Indication: CYSTIC FIBROSIS
     Dosage: ?          OTHER DOSE:300/5 MG/ML;?
     Route: 055
     Dates: start: 20180817
  3. CAYSTON [Concomitant]
     Active Substance: AZTREONAM
  4. TRIKAFA [Concomitant]

REACTIONS (1)
  - Hospitalisation [None]
